FAERS Safety Report 6443571-6 (Version None)
Quarter: 2009Q4

REPORT INFORMATION
  Report Type: 
  Country: None (occurrence: None)
  Receive Date: 20091117
  Receipt Date: 20091109
  Transmission Date: 20100525
  Serious: Yes (Other)
  Sender: FDA-Public Use
  Company Number: US-BAYER-200916491BCC

PATIENT
  Age: 22 Year
  Sex: Male

DRUGS (3)
  1. ALEVE [Suspect]
     Indication: DRUG USE FOR UNKNOWN INDICATION
     Dosage: TOTAL DAILY DOSE: 3300 MG  UNIT DOSE: 220 MG
     Route: 048
     Dates: start: 20090401
  2. AMBIEN [Suspect]
     Indication: DRUG USE FOR UNKNOWN INDICATION
     Dosage: TOTAL DAILY DOSE: 5 DF  UNIT DOSE: 1 DF
     Route: 048
     Dates: start: 20090401
  3. ALCOHOL [Suspect]
     Indication: DRUG USE FOR UNKNOWN INDICATION
     Dates: start: 20090401

REACTIONS (3)
  - AMNESIA [None]
  - CONFUSIONAL STATE [None]
  - HOMICIDE [None]
